FAERS Safety Report 7015291-0 (Version None)
Quarter: 2010Q3

REPORT INFORMATION
  Report Type: 
  Country: None (occurrence: None)
  Receive Date: 20100927
  Receipt Date: 20100924
  Transmission Date: 20110219
  Serious: Yes (Hospitalization)
  Sender: FDA-Public Use
  Company Number: FR-US-EMD SERONO, INC.-220004N09FRA

PATIENT
  Sex: Male
  Weight: 82 kg

DRUGS (11)
  1. SAIZEN [Suspect]
     Indication: GROWTH HORMONE DEFICIENCY
     Route: 058
     Dates: start: 20050520
  2. HYDROCORTISONE [Concomitant]
     Indication: BLOOD CORTICOTROPHIN DECREASED
     Route: 048
     Dates: start: 20080624
  3. FLUDROCORTISONE [Concomitant]
     Indication: BLOOD CORTICOTROPHIN DECREASED
     Route: 048
     Dates: start: 19800101
  4. LEVOTHYROXISO [Concomitant]
     Indication: BLOOD THYROID STIMULATING HORMONE DECREASED
     Route: 048
     Dates: start: 20060101
  5. MINIRIN [Concomitant]
     Indication: DIABETES MELLITUS
     Route: 048
     Dates: start: 19800101
  6. ZYLORIC [Concomitant]
     Indication: HYPERURICAEMIA
     Route: 048
     Dates: start: 20051125
  7. LAMICTAL [Concomitant]
     Indication: EPILEPSY
     Route: 048
  8. PROZAC [Concomitant]
     Indication: DEPRESSION
     Route: 048
  9. ANDROTARDYL [Concomitant]
     Indication: GONADOTROPHIN DEFICIENCY
     Route: 030
     Dates: start: 19800101
  10. DEPAKENE [Concomitant]
     Indication: EPILEPSY
     Route: 048
     Dates: start: 19800101
  11. VASTAREL [Concomitant]
     Indication: VENOUS INSUFFICIENCY
     Route: 048

REACTIONS (2)
  - HAEMORRHAGE [None]
  - PILONIDAL CYST [None]
